FAERS Safety Report 26036850 (Version 1)
Quarter: 2025Q4

REPORT INFORMATION
  Report Type: Other
  Country: US (occurrence: US)
  Receive Date: 20251112
  Receipt Date: 20251112
  Transmission Date: 20260117
  Serious: No
  Sender: PARATEK PHARMACEUTICALS
  Company Number: US-PARATEK PHARMACEUTICALS, INC.-2024PTK00074

PATIENT
  Sex: Male

DRUGS (6)
  1. OMADACYCLINE [Suspect]
     Active Substance: OMADACYCLINE
     Indication: Mycobacterium abscessus infection
     Dosage: UNK
  2. OMADACYCLINE [Suspect]
     Active Substance: OMADACYCLINE
     Indication: Osteomyelitis bacterial
  3. AZITHROMYCIN [Suspect]
     Active Substance: AZITHROMYCIN
     Indication: Mycobacterium abscessus infection
     Dosage: UNK
  4. AZITHROMYCIN [Suspect]
     Active Substance: AZITHROMYCIN
     Indication: Osteomyelitis bacterial
  5. LINEZOLID [Suspect]
     Active Substance: LINEZOLID
     Indication: Mycobacterium abscessus infection
     Dosage: UNK
  6. LINEZOLID [Suspect]
     Active Substance: LINEZOLID
     Indication: Osteomyelitis bacterial

REACTIONS (3)
  - Skin discolouration [Unknown]
  - Cellulitis [Unknown]
  - Drug ineffective for unapproved indication [Not Recovered/Not Resolved]
